FAERS Safety Report 4358931-7 (Version None)
Quarter: 2004Q2

REPORT INFORMATION
  Report Type: 
  Country: None (occurrence: None)
  Receive Date: 20040512
  Receipt Date: 20040428
  Transmission Date: 20050107
  Serious: Yes (Hospitalization)
  Sender: FDA-Public Use
  Company Number: USA040466241

PATIENT
  Age: 73 Year
  Sex: Female

DRUGS (7)
  1. ZYPREXA [Suspect]
     Dosage: 7.5 MG
     Dates: start: 20000301
  2. CELEBREX [Concomitant]
  3. SYNTHROID [Concomitant]
  4. ZOCOR [Concomitant]
  5. ZANAFLEX [Concomitant]
  6. DEPAKOTE [Concomitant]
  7. CELEXA [Concomitant]

REACTIONS (6)
  - ACTIVITIES OF DAILY LIVING IMPAIRED [None]
  - CONDITION AGGRAVATED [None]
  - DEMENTIA ALZHEIMER'S TYPE [None]
  - FALL [None]
  - HIP FRACTURE [None]
  - NASOPHARYNGITIS [None]
